FAERS Safety Report 17483267 (Version 2)
Quarter: 2020Q1

REPORT INFORMATION
  Report Type: Report from Study
  Country: US (occurrence: US)
  Receive Date: 20200302
  Receipt Date: 20200320
  Transmission Date: 20200409
  Serious: Yes (Death, Hospitalization)
  Sender: FDA-Public Use
  Company Number: US-BAYER-2020-035392

PATIENT
  Age: 66 Year
  Sex: Male

DRUGS (1)
  1. STIVARGA [Suspect]
     Active Substance: REGORAFENIB
     Indication: COLON CANCER
     Dosage: 120 MG, QD SWALLOW WHOLE WITH WATER AND LOWFAT BREAKFAST FOR 21 DAYS EVERY 28 DAYS
     Route: 048
     Dates: start: 20200123, end: 20200128

REACTIONS (3)
  - Death [Fatal]
  - Hospitalisation [None]
  - Off label use [None]

NARRATIVE: CASE EVENT DATE: 20200123
